FAERS Safety Report 4589428-7 (Version None)
Quarter: 2005Q1

REPORT INFORMATION
  Report Type: 
  Country: None (occurrence: None)
  Receive Date: 20050223
  Receipt Date: 20050106
  Transmission Date: 20050727
  Serious: Yes (Death)
  Sender: FDA-Public Use
  Company Number: 200510054JP

PATIENT
  Age: 79 Year
  Sex: Male

DRUGS (6)
  1. LASIX [Suspect]
     Indication: DIURETIC THERAPY
     Route: 048
     Dates: start: 20010129, end: 20010610
  2. LASIX [Suspect]
     Indication: HYPERTENSION
     Route: 048
     Dates: start: 20010129, end: 20010610
  3. ALOSITOL [Suspect]
     Indication: HYPERURICAEMIA
     Route: 048
     Dates: start: 20010509, end: 20010606
  4. NU-LOTAN [Concomitant]
     Indication: HYPERTENSION
     Route: 048
     Dates: start: 20010509, end: 20010610
  5. NORVASC [Concomitant]
     Indication: HYPERTENSION
     Route: 048
     Dates: start: 20010509, end: 20010610
  6. MAINTATE [Concomitant]
     Indication: HYPERTENSION
     Route: 048
     Dates: start: 20010509, end: 20010610

REACTIONS (10)
  - BLOOD PH DECREASED [None]
  - CARDIAC FAILURE [None]
  - DIARRHOEA [None]
  - HYPERTENSION [None]
  - HYPERURICAEMIA [None]
  - OCULOMUCOCUTANEOUS SYNDROME [None]
  - RENAL FAILURE [None]
  - STEVENS-JOHNSON SYNDROME [None]
  - STOMATITIS [None]
  - URINARY RETENTION [None]
